FAERS Safety Report 6698706-7 (Version None)
Quarter: 2010Q2

REPORT INFORMATION
  Report Type: 
  Country: None (occurrence: None)
  Receive Date: 20100427
  Receipt Date: 20091109
  Transmission Date: 20101027
  Serious: No
  Sender: FDA-Public Use
  Company Number: US-ASTRAZENECA-2009SE25433

PATIENT
  Sex: Male
  Weight: 90.7 kg

DRUGS (1)
  1. ZOMIG [Suspect]
     Route: 065

REACTIONS (1)
  - FATIGUE [None]
